FAERS Safety Report 9375464 (Version 1)
Quarter: 2013Q2

REPORT INFORMATION
  Report Type: Spontaneous
  Country: FR (occurrence: FR)
  Receive Date: 20130628
  Receipt Date: 20130628
  Transmission Date: 20140414
  Serious: Yes (Hospitalization)
  Sender: FDA-Public Use
  Company Number: FR-GLAXOSMITHKLINE-B0902355A

PATIENT
  Age: 77 Year
  Sex: Male

DRUGS (10)
  1. ZOPHREN [Suspect]
     Indication: PRODUCT USED FOR UNKNOWN INDICATION
     Route: 065
     Dates: start: 201203, end: 201203
  2. TRAMADOL [Suspect]
     Indication: PRODUCT USED FOR UNKNOWN INDICATION
     Route: 065
     Dates: start: 201203, end: 201203
  3. LOXEN [Suspect]
     Indication: PRODUCT USED FOR UNKNOWN INDICATION
     Route: 065
     Dates: start: 201203, end: 201203
  4. LOVENOX [Suspect]
     Indication: PRODUCT USED FOR UNKNOWN INDICATION
     Route: 058
     Dates: start: 201203, end: 201203
  5. ACUPAN [Suspect]
     Indication: PRODUCT USED FOR UNKNOWN INDICATION
     Route: 058
     Dates: start: 201203, end: 201203
  6. CEFAMANDOLE [Suspect]
     Indication: PRODUCT USED FOR UNKNOWN INDICATION
     Route: 042
     Dates: start: 20120301, end: 20120301
  7. XENETIX [Concomitant]
     Route: 065
     Dates: start: 20120301, end: 20120301
  8. BETADINE [Concomitant]
     Route: 065
     Dates: start: 201203
  9. SMECTA [Concomitant]
     Route: 065
     Dates: start: 201203
  10. SPASFON [Concomitant]
     Route: 065
     Dates: start: 201203

REACTIONS (4)
  - Toxic skin eruption [Recovered/Resolved]
  - Erythrosis [Recovered/Resolved]
  - Skin lesion [Recovered/Resolved]
  - Thermal burn [Recovered/Resolved]
